FAERS Safety Report 11879434 (Version 2)
Quarter: 2016Q1

REPORT INFORMATION
  Report Type: Report from Study
  Country: US (occurrence: US)
  Receive Date: 20151221
  Receipt Date: 20160104
  Transmission Date: 20160526
  Serious: Yes (Hospitalization)
  Sender: FDA-Public Use
  Company Number: US-GILEAD-2015-0188870

PATIENT
  Age: 83 Year
  Sex: Female

DRUGS (1)
  1. RANOLAZINE [Suspect]
     Active Substance: RANOLAZINE
     Indication: ANGINA PECTORIS
     Dosage: 500 MG, BID
     Route: 048

REACTIONS (4)
  - Drug dose omission [Unknown]
  - Urticaria [Unknown]
  - Wrong technique in product usage process [Unknown]
  - Asthma [Unknown]
